FAERS Safety Report 4649259-6 (Version None)
Quarter: 2005Q2

REPORT INFORMATION
  Report Type: 
  Country: None (occurrence: None)
  Receive Date: 20050429
  Receipt Date: 20030902
  Transmission Date: 20051028
  Serious: Yes (Hospitalization, Disabling)
  Sender: FDA-Public Use
  Company Number: US-MERCK-0309USA00395

PATIENT
  Age: 55 Year
  Sex: Male
  Weight: 115 kg

DRUGS (17)
  1. ZOCOR [Suspect]
     Route: 048
     Dates: start: 20001027, end: 20010701
  2. ZOCOR [Suspect]
     Route: 048
     Dates: start: 20030508, end: 20030101
  3. ZOCOR [Suspect]
     Route: 048
     Dates: start: 20020501, end: 20030501
  4. LEVAQUIN [Suspect]
     Indication: PROSTATITIS
     Route: 048
     Dates: start: 20030829
  5. LEVAQUIN [Suspect]
     Indication: CYSTITIS
     Route: 048
     Dates: start: 20030829
  6. LISINOPRIL [Suspect]
     Indication: BLOOD PRESSURE
     Route: 048
     Dates: start: 20030508, end: 20030829
  7. LISINOPRIL [Suspect]
     Route: 048
     Dates: start: 20030830
  8. LISINOPRIL [Suspect]
     Indication: RENAL DISORDER
     Route: 048
     Dates: start: 20030508, end: 20030829
  9. LISINOPRIL [Suspect]
     Route: 048
     Dates: start: 20030830
  10. DANAZOL [Suspect]
     Indication: THROMBOCYTOPENIA
     Route: 048
     Dates: start: 20020429
  11. DANAZOL [Suspect]
     Route: 048
     Dates: start: 20000214
  12. METFORMIN HCL [Suspect]
     Indication: DIABETES MELLITUS
     Route: 048
     Dates: start: 20021219, end: 20030801
  13. METFORMIN HCL [Suspect]
     Route: 048
     Dates: start: 20030509
  14. OLANZAPINE [Concomitant]
     Route: 048
     Dates: start: 20020213
  15. VENLAFAXINE HYDROCHLORIDE [Concomitant]
     Route: 065
     Dates: start: 20020213
  16. CITALOPRAM HYDROBROMIDE [Concomitant]
     Route: 048
     Dates: start: 20020509
  17. CITALOPRAM HYDROBROMIDE [Concomitant]
     Route: 048

REACTIONS (23)
  - ACUTE SINUSITIS [None]
  - ANAEMIA [None]
  - CALCINOSIS [None]
  - CATHETER SEPSIS [None]
  - CHEST WALL PAIN [None]
  - CONFUSIONAL STATE [None]
  - CYSTITIS [None]
  - DRUG INTERACTION [None]
  - HYPERCALCAEMIA [None]
  - HYPOALBUMINAEMIA [None]
  - HYPOCALCAEMIA [None]
  - ILEUS PARALYTIC [None]
  - MEDICATION ERROR [None]
  - PNEUMONIA [None]
  - PROSTATITIS [None]
  - RENAL FAILURE ACUTE [None]
  - RHABDOMYOLYSIS [None]
  - SCHIZOPHRENIA, PARANOID TYPE [None]
  - THROMBOCYTOPENIA [None]
  - URINARY RETENTION [None]
  - URINARY TRACT INFECTION PSEUDOMONAL [None]
  - URINARY TRACT INFECTION STAPHYLOCOCCAL [None]
  - WEIGHT DECREASED [None]
